FAERS Safety Report 13882430 (Version 1)
Quarter: 2017Q3

REPORT INFORMATION
  Report Type: Spontaneous
  Country: GB (occurrence: GB)
  Receive Date: 20170818
  Receipt Date: 20170818
  Transmission Date: 20171127
  Serious: Yes (Life-Threatening, Hospitalization, Disabling, Other)
  Sender: FDA-Public Use
  Company Number: GB-TORRENT-00015508

PATIENT
  Age: 59 Year
  Sex: Female
  Weight: 49 kg

DRUGS (19)
  1. CODEINE [Concomitant]
     Active Substance: CODEINE
  2. PARACETAMOL [Concomitant]
     Active Substance: ACETAMINOPHEN
  3. CLOPIDOGREL [Suspect]
     Active Substance: CLOPIDOGREL BISULFATE
  4. ATENOLOL. [Concomitant]
     Active Substance: ATENOLOL
  5. GLYCERYL TRINITRATE [Concomitant]
     Active Substance: NITROGLYCERIN
  6. CITALOPRAM [Concomitant]
     Active Substance: CITALOPRAM HYDROBROMIDE
  7. MIRTAZAPINE. [Concomitant]
     Active Substance: MIRTAZAPINE
  8. RAMIPRIL. [Concomitant]
     Active Substance: RAMIPRIL
  9. DOXAZOSIN [Concomitant]
     Active Substance: DOXAZOSIN\DOXAZOSIN MESYLATE
  10. PREGABALIN. [Concomitant]
     Active Substance: PREGABALIN
  11. AMLODIPINE [Concomitant]
     Active Substance: AMLODIPINE BESYLATE
  12. BUMETANIDE. [Concomitant]
     Active Substance: BUMETANIDE
  13. CHLORHEXIDINE GLUCONATE. [Concomitant]
     Active Substance: CHLORHEXIDINE GLUCONATE
  14. CHEMYDUR XL [Concomitant]
  15. DOCUSATE [Concomitant]
     Active Substance: DOCUSATE
  16. LAXIDO [Concomitant]
     Active Substance: POLYETHYLENE GLYCOL 3350\POTASSIUM CHLORIDE\SODIUM BICARBONATE\SODIUM CHLORIDE
  17. NICORANDIL [Concomitant]
     Active Substance: NICORANDIL
  18. ATORVASTATIN [Concomitant]
     Active Substance: ATORVASTATIN
  19. DERMOL [Concomitant]
     Active Substance: BENZALKONIUM CHLORIDE\CHLORHEXIDINE HYDROCHLORIDE\ISOPROPYL MYRISTATE\PARAFFIN

REACTIONS (4)
  - Dysphagia [Not Recovered/Not Resolved]
  - Muscle spasticity [Not Recovered/Not Resolved]
  - Brain midline shift [Unknown]
  - Haemorrhage intracranial [Not Recovered/Not Resolved]

NARRATIVE: CASE EVENT DATE: 20170303
